FAERS Safety Report 5441503-0 (Version None)
Quarter: 2007Q3

REPORT INFORMATION
  Report Type: 
  Country: None (occurrence: None)
  Receive Date: 20070829
  Receipt Date: 20070822
  Transmission Date: 20080115
  Serious: Yes (Other)
  Sender: FDA-Public Use
  Company Number: S07-USA-03565-01

PATIENT
  Age: 60 Year
  Sex: Female

DRUGS (3)
  1. LEXAPRO [Suspect]
     Indication: DEPRESSION
     Dosage: 5 MG QD PO
     Route: 048
     Dates: start: 20070801, end: 20070819
  2. LEXAPRO [Suspect]
     Indication: DEPRESSION
     Dosage: 10 MG QD PO
     Route: 048
     Dates: start: 20070820
  3. LEVOTHYROXINE SODIUM [Concomitant]

REACTIONS (6)
  - ANXIETY [None]
  - DIARRHOEA [None]
  - DRUG EFFECT DECREASED [None]
  - FAECES DISCOLOURED [None]
  - HAEMATOCHEZIA [None]
  - NAUSEA [None]
